FAERS Safety Report 8501619-9 (Version None)
Quarter: 2012Q3

REPORT INFORMATION
  Report Type: 
  Country: None (occurrence: None)
  Receive Date: 20120710
  Receipt Date: 20120628
  Transmission Date: 20120928
  Serious: Yes (Hospitalization)
  Sender: FDA-Public Use
  Company Number: CA-AMGEN-CANSP2012033024

PATIENT
  Age: 64 Year
  Sex: Female
  Weight: 52.608 kg

DRUGS (8)
  1. PLAQUENIL [Concomitant]
     Dosage: UNK
  2. PREDNISONE [Concomitant]
     Dosage: UNK
  3. LOPRESSOR [Concomitant]
     Dosage: UNK
  4. METHOTREXATE [Concomitant]
     Dosage: UNK
  5. PANTOPRAZOLE SODIUM [Concomitant]
     Dosage: UNK
  6. ENBREL [Suspect]
     Dosage: 50 MG, QWK
     Route: 058
     Dates: start: 20080710, end: 20120101
  7. ENBREL [Suspect]
     Indication: RHEUMATOID ARTHRITIS
     Dosage: 50 MG, QWK
     Route: 058
     Dates: start: 20120504
  8. FLONASE [Concomitant]
     Dosage: UNK UNK, TID
     Route: 048

REACTIONS (2)
  - POST PROCEDURAL COMPLICATION [None]
  - HIP SURGERY [None]
